FAERS Safety Report 4268891-5 (Version None)
Quarter: 2004Q1

REPORT INFORMATION
  Report Type: 
  Country: None (occurrence: None)
  Receive Date: 20040108
  Receipt Date: 20040102
  Transmission Date: 20041129
  Serious: Yes (Life-Threatening, Other)
  Sender: FDA-Public Use
  Company Number: 2003189728US

PATIENT
  Age: 39 Year
  Sex: Female

DRUGS (9)
  1. BEXTRA [Suspect]
     Indication: CARPAL TUNNEL SYNDROME
     Dates: start: 20031203
  2. GUIFENEX (PHENYLEPHRINE HYDROCHLORIDE) [Concomitant]
  3. GLUCOPHAGE [Concomitant]
  4. OSCAL [Concomitant]
  5. ADVAIR DISKUS 250/50 [Concomitant]
  6. NASACORT [Concomitant]
  7. SPIRONOLACTONE [Concomitant]
  8. ALLEGRA [Concomitant]
  9. ALBUTEROL [Concomitant]

REACTIONS (3)
  - ASTHMA [None]
  - BRONCHOSPASM [None]
  - HYPERSENSITIVITY [None]
